FAERS Safety Report 25766206 (Version 1)
Quarter: 2025Q3

REPORT INFORMATION
  Report Type: Spontaneous
  Country: US (occurrence: None)
  Receive Date: 20250904
  Receipt Date: 20250904
  Transmission Date: 20251020
  Serious: Yes (Hospitalization)
  Sender: FDA-CTU
  Company Number: None

PATIENT
  Sex: Female

DRUGS (5)
  1. OPSUMIT [Suspect]
     Active Substance: MACITENTAN
     Indication: Pulmonary arterial hypertension
     Dosage: 10 MG DAILY ORAL
     Route: 048
     Dates: start: 20161129
  2. DEVICE [Concomitant]
     Active Substance: DEVICE
  3. DEFERASIROX [Concomitant]
     Active Substance: DEFERASIROX
  4. STERILE DILUENT FOR REMODULIN [Concomitant]
     Active Substance: WATER
  5. REMODULIN [Suspect]
     Active Substance: TREPROSTINIL

REACTIONS (2)
  - Product use issue [None]
  - Haematological infection [None]
